FAERS Safety Report 7785508-3 (Version None)
Quarter: 2011Q3

REPORT INFORMATION
  Report Type: 
  Country: None (occurrence: None)
  Receive Date: 20110929
  Receipt Date: 20110525
  Transmission Date: 20111222
  Serious: No
  Sender: FDA-Public Use
  Company Number: US-BAYER-2011-046969

PATIENT
  Age: 71 Year
  Sex: Female
  Weight: 91 kg

DRUGS (2)
  1. ALEVE (CAPLET) [Suspect]
     Indication: ARTHRALGIA
     Dosage: 1 TAB THREE TIMES DAILY
     Route: 048
     Dates: start: 20110512
  2. ALEVE (CAPLET) [Suspect]
     Dosage: 5 TABLETS IN A DAY
     Route: 048
     Dates: start: 20110524

REACTIONS (3)
  - INCORRECT DRUG ADMINISTRATION DURATION [None]
  - ARTHRALGIA [None]
  - INCORRECT DOSE ADMINISTERED [None]
